FAERS Safety Report 8105484-3 (Version None)
Quarter: 2012Q1

REPORT INFORMATION
  Report Type: 
  Country: None (occurrence: None)
  Receive Date: 20120201
  Receipt Date: 20120123
  Transmission Date: 20120608
  Serious: Yes (Other)
  Sender: FDA-Public Use
  Company Number: US-ASTRAZENECA-2011SE64780

PATIENT
  Age: 57 Year
  Sex: Male

DRUGS (34)
  1. SEROQUEL XR [Suspect]
     Indication: DEPRESSION
     Dosage: 300 MG, EVERY EVENING PRIOR TO MEAL
     Route: 048
  2. ENALAPRIL MALEATE [Concomitant]
     Indication: HYPERTENSION
  3. ASPIRIN [Concomitant]
  4. KLONOPIN [Concomitant]
  5. KLONOPIN [Concomitant]
  6. HYDROCODONE BITARTRATE AND ACETAMINOPHEN [Concomitant]
     Dosage: AS REQUIRED
  7. ZOLOFT [Concomitant]
  8. CELEXA [Concomitant]
  9. DEPAKOTE ER [Concomitant]
     Route: 048
  10. LITHIUM CARBONATE [Concomitant]
     Dosage: 450 MG , ONE HALF AT NIGHT
  11. PROCTOZONE HC [Concomitant]
  12. SYNTHROID [Concomitant]
     Route: 048
  13. SEROQUEL XR [Suspect]
     Route: 048
  14. SEROQUEL XR [Suspect]
     Dosage: 150 MG BREAKING IN HALF
     Route: 048
  15. TRAZODONE HCL [Concomitant]
     Route: 048
  16. TRAZODONE HCL [Concomitant]
     Indication: SLEEP DISORDER
     Route: 048
  17. LITHIUM CARBONATE [Concomitant]
  18. SEROQUEL XR [Suspect]
     Dosage: 600 MG ONE HOUR PRIOR TO HIS DINNER MEAL
     Route: 048
  19. STRATTERA [Concomitant]
  20. DEPAKOTE ER [Concomitant]
     Route: 048
  21. MILK OF MAGNESIA TAB [Concomitant]
  22. MIRALAX [Concomitant]
  23. SYNTHROID [Concomitant]
     Route: 048
  24. SYNTHROID [Concomitant]
     Route: 048
  25. SYNTHROID [Concomitant]
  26. DOXAZOSIN [Concomitant]
     Indication: BENIGN PROSTATIC HYPERPLASIA
  27. SEROQUEL XR [Suspect]
     Dosage: 350 MG BREAKING IN HALF
     Route: 048
  28. ZETIA [Concomitant]
     Indication: HYPERLIPIDAEMIA
  29. CYMBALTA [Concomitant]
  30. VESICARE [Concomitant]
  31. SEROQUEL XR [Suspect]
     Route: 048
  32. SEROQUEL XR [Suspect]
     Dosage: 600 MG EVERY EVENING
     Route: 048
  33. IBUPROFEN (ADVIL) [Concomitant]
  34. ZYPREXA [Concomitant]

REACTIONS (31)
  - DECREASED APPETITE [None]
  - WEIGHT DECREASED [None]
  - CHILLS [None]
  - CONFUSIONAL STATE [None]
  - DYSARTHRIA [None]
  - SEDATION [None]
  - SLEEP DISORDER [None]
  - NAUSEA [None]
  - URINARY RETENTION [None]
  - AFFECT LABILITY [None]
  - ACTIVITIES OF DAILY LIVING IMPAIRED [None]
  - SOLILOQUY [None]
  - AGITATION [None]
  - GRANDIOSITY [None]
  - BRONCHITIS [None]
  - RECTAL HAEMORRHAGE [None]
  - INTESTINAL ISCHAEMIA [None]
  - HALLUCINATION, AUDITORY [None]
  - FATIGUE [None]
  - DRY MOUTH [None]
  - COLONIC OBSTRUCTION [None]
  - ABDOMINAL PAIN UPPER [None]
  - WRONG TECHNIQUE IN DRUG USAGE PROCESS [None]
  - GENITOURINARY TRACT NEOPLASM [None]
  - PRESSURE OF SPEECH [None]
  - THERAPEUTIC RESPONSE UNEXPECTED [None]
  - PERSECUTORY DELUSION [None]
  - TANGENTIALITY [None]
  - BIPOLAR I DISORDER [None]
  - ASTHENIA [None]
  - INCORRECT DOSE ADMINISTERED [None]
